FAERS Safety Report 15152933 (Version 1)
Quarter: 2018Q3

REPORT INFORMATION
  Report Type: Spontaneous
  Country: US (occurrence: US)
  Receive Date: 20180717
  Receipt Date: 20180717
  Transmission Date: 20181010
  Serious: Yes (Death, Hospitalization, Other)
  Sender: FDA-Public Use
  Company Number: US-ROCHE-2154106

PATIENT
  Sex: Male

DRUGS (1)
  1. RITUXAN [Suspect]
     Active Substance: RITUXIMAB
     Indication: CASTLEMAN^S DISEASE
     Route: 065

REACTIONS (5)
  - Intentional product use issue [Fatal]
  - Neoplasm [Unknown]
  - Lymphoma [Fatal]
  - Off label use [Fatal]
  - Interleukin level increased [Unknown]

NARRATIVE: CASE EVENT DATE: 2004
